FAERS Safety Report 6073120-6 (Version None)
Quarter: 2009Q1

REPORT INFORMATION
  Report Type: 
  Country: None (occurrence: None)
  Receive Date: 20090211
  Receipt Date: 20090203
  Transmission Date: 20090719
  Serious: Yes (Other)
  Sender: FDA-Public Use
  Company Number: ES-JNJFOC-20090201654

PATIENT
  Sex: Female

DRUGS (12)
  1. REMICADE [Suspect]
     Indication: ANKYLOSING SPONDYLITIS
     Route: 042
  2. CALCIUM VITAMIN D [Concomitant]
  3. OMEPRAZOLE [Concomitant]
  4. ACFOL [Concomitant]
  5. CORTICOID [Concomitant]
  6. METHOTREXATE [Concomitant]
  7. CYCLOPHOSPHAMIDE [Concomitant]
  8. AINES [Concomitant]
  9. BIOPHOSPHONATE [Concomitant]
  10. BENZODIAZEPINE [Concomitant]
  11. PREDNISONE [Concomitant]
  12. CO-TRIMOXAZOLE [Concomitant]

REACTIONS (2)
  - BLADDER PAPILLOMA [None]
  - THERAPEUTIC RESPONSE DECREASED [None]
